FAERS Safety Report 5655382-X (Version None)
Quarter: 2008Q1

REPORT INFORMATION
  Report Type: 
  Country: None (occurrence: None)
  Receive Date: 20080307
  Receipt Date: 20080227
  Transmission Date: 20080703
  Serious: Yes (Death)
  Sender: FDA-Public Use
  Company Number: JP-MERCK-0802USA06376

PATIENT
  Age: 55 Year
  Sex: Male

DRUGS (2)
  1. PRIMAXIN [Suspect]
     Route: 030
     Dates: start: 20080216, end: 20080216
  2. PRIMAXIN [Suspect]
     Route: 030

REACTIONS (2)
  - ALTERED STATE OF CONSCIOUSNESS [None]
  - ARRHYTHMIA [None]
